FAERS Safety Report 8849769 (Version 5)
Quarter: 2015Q2

REPORT INFORMATION
  Report Type: Report from Study
  Country: CA (occurrence: CA)
  Receive Date: 20121019
  Receipt Date: 20150413
  Transmission Date: 20150821
  Serious: Yes (Other)
  Sender: FDA-Public Use
  Company Number: PHHY2012CA093477

PATIENT
  Age: 29 Year
  Sex: Female

DRUGS (2)
  1. NEURONTIN [Concomitant]
     Active Substance: GABAPENTIN
     Indication: PRODUCT USED FOR UNKNOWN INDICATION
     Dosage: 300 OT, UNK
     Route: 065
  2. GILENYA [Suspect]
     Active Substance: FINGOLIMOD HYDROCHLORIDE
     Indication: RELAPSING-REMITTING MULTIPLE SCLEROSIS
     Dosage: 0.5 MG, QD
     Route: 048
     Dates: start: 20121015

REACTIONS (24)
  - Gait disturbance [Not Recovered/Not Resolved]
  - Fatigue [Not Recovered/Not Resolved]
  - Contusion [Unknown]
  - Multiple sclerosis relapse [Unknown]
  - Abasia [Unknown]
  - Lymphopenia [Unknown]
  - Fall [Recovered/Resolved]
  - Limb discomfort [Unknown]
  - Vertigo [Unknown]
  - Pruritus [Recovered/Resolved]
  - Hypoaesthesia [Unknown]
  - Central nervous system lesion [Unknown]
  - Eye pain [Unknown]
  - Cerebellar syndrome [Unknown]
  - Muscular weakness [Unknown]
  - Balance disorder [Recovered/Resolved]
  - Vision blurred [Unknown]
  - Perineal infection [Unknown]
  - Eye swelling [Unknown]
  - Memory impairment [Unknown]
  - Muscle spasms [Unknown]
  - Headache [Recovered/Resolved]
  - Asthenia [Recovered/Resolved]
  - Diarrhoea [Recovered/Resolved]

NARRATIVE: CASE EVENT DATE: 20121015
